FAERS Safety Report 7396273-6 (Version None)
Quarter: 2011Q2

REPORT INFORMATION
  Report Type: 
  Country: None (occurrence: None)
  Receive Date: 20110406
  Receipt Date: 20110403
  Transmission Date: 20111010
  Serious: Yes (Death, Hospitalization, Other)
  Sender: FDA-Public Use
  Company Number: JP-ABBOTT-10P-087-0671443-00

PATIENT
  Sex: Male

DRUGS (3)
  1. HUMIRA [Suspect]
     Indication: RHEUMATOID ARTHRITIS
     Route: 058
     Dates: start: 20090928, end: 20100409
  2. ETANERCEPT [Suspect]
     Indication: RHEUMATOID ARTHRITIS
     Dates: end: 20090919
  3. METHOTREXATE [Concomitant]
     Indication: RHEUMATOID ARTHRITIS
     Dosage: 10 MG PER WEEK
     Route: 048
     Dates: start: 20090920, end: 20100409

REACTIONS (14)
  - HEPATIC CANCER METASTATIC [None]
  - ASPARTATE AMINOTRANSFERASE INCREASED [None]
  - HEPATIC FAILURE [None]
  - COLON CANCER [None]
  - BACK PAIN [None]
  - ALANINE AMINOTRANSFERASE INCREASED [None]
  - METASTASES TO LIVER [None]
  - RHEUMATOID ARTHRITIS [None]
  - GAMMA-GLUTAMYLTRANSFERASE INCREASED [None]
  - DIABETES MELLITUS [None]
  - LIVER FUNCTION TEST ABNORMAL [None]
  - HYPOPHAGIA [None]
  - MALAISE [None]
  - BLOOD LACTATE DEHYDROGENASE INCREASED [None]
